FAERS Safety Report 10550838 (Version 3)
Quarter: 2014Q4

REPORT INFORMATION
  Report Type: Report from Study
  Country: BR (occurrence: BR)
  Receive Date: 20141029
  Receipt Date: 20141125
  Transmission Date: 20150529
  Serious: Yes (Hospitalization, Other)
  Sender: FDA-Public Use
  Company Number: PHHY2014BR080471

PATIENT
  Age: 60 Year
  Sex: Male
  Weight: 73 kg

DRUGS (8)
  1. EXJADE [Suspect]
     Active Substance: DEFERASIROX
     Dosage: 250 MG, (1 DF) QD
     Route: 065
     Dates: start: 20130927, end: 20131003
  2. EXJADE [Suspect]
     Active Substance: DEFERASIROX
     Dosage: 2000 MG, (4 DF) QD
     Route: 065
     Dates: start: 20131026, end: 20131213
  3. EXJADE [Suspect]
     Active Substance: DEFERASIROX
     Dosage: 500 MG, (1 DF) QD (USED FOR 15 DAYS)
     Route: 065
     Dates: start: 201401
  4. EXJADE [Suspect]
     Active Substance: DEFERASIROX
     Dosage: 250 MG, (1 DF) QD, (USED FOR 15 DAYS
     Route: 065
     Dates: start: 20140918
  5. EXJADE [Suspect]
     Active Substance: DEFERASIROX
     Dosage: 500 MG, (2DF) QD
     Route: 065
     Dates: start: 20131004, end: 20131010
  6. EXJADE [Suspect]
     Active Substance: DEFERASIROX
     Dosage: 750 MG, (3 DF) QD
     Route: 065
     Dates: start: 20131011, end: 20131025
  7. EXJADE [Suspect]
     Active Substance: DEFERASIROX
     Dosage: 1500 MG, (3 DF OF 500 MG) QD (USED FOR 15 DAYS)
     Route: 065
  8. EXJADE [Suspect]
     Active Substance: DEFERASIROX
     Indication: THALASSAEMIA
     Dosage: 500 MG (1 DF), QD
     Route: 065
     Dates: start: 20130327, end: 20131003

REACTIONS (9)
  - Memory impairment [Recovered/Resolved]
  - Urine output decreased [Recovered/Resolved]
  - Vomiting [Recovered/Resolved]
  - Abdominal discomfort [Recovered/Resolved]
  - Dehydration [Recovered/Resolved]
  - Serum ferritin increased [Recovered/Resolved]
  - Anger [Recovered/Resolved]
  - Confusional state [Recovered/Resolved]
  - Blood creatinine increased [Recovered/Resolved]

NARRATIVE: CASE EVENT DATE: 201311
